FAERS Safety Report 4790949-2 (Version None)
Quarter: 2005Q4

REPORT INFORMATION
  Report Type: 
  Country: None (occurrence: None)
  Receive Date: 20051005
  Receipt Date: 20051005
  Transmission Date: 20060501
  Serious: Yes (Other)
  Sender: FDA-Public Use
  Company Number: None

PATIENT
  Sex: Female
  Weight: 57.3347 kg

DRUGS (1)
  1. STRATTERA [Suspect]
     Indication: ATTENTION DEFICIT/HYPERACTIVITY DISORDER
     Dosage: 40 MG   DAILY  PO
     Route: 048
     Dates: start: 20050916, end: 20050926

REACTIONS (3)
  - DIZZINESS [None]
  - PULSE ABNORMAL [None]
  - TINNITUS [None]
